FAERS Safety Report 10147319 (Version 1)
Quarter: 2014Q2

REPORT INFORMATION
  Report Type: Spontaneous
  Country: PH (occurrence: PH)
  Receive Date: 20140501
  Receipt Date: 20140501
  Transmission Date: 20141212
  Serious: Yes (Death, Life-Threatening, Hospitalization)
  Sender: FDA-Public Use
  Company Number: PH-B.I. PHARMACEUTICALS,INC./RIDGEFIELD-2014-BI-19395RP

PATIENT
  Age: 78 Year
  Sex: Male

DRUGS (5)
  1. PRADAXA [Suspect]
     Indication: CEREBROVASCULAR ACCIDENT PROPHYLAXIS
     Dosage: 220 MG
     Route: 065
     Dates: start: 2011
  2. PRADAXA [Suspect]
     Indication: ATRIAL FIBRILLATION
     Dosage: 110 MG
     Route: 065
     Dates: end: 201404
  3. TRAJENTA/LINAGLIPTIN [Concomitant]
     Indication: DIABETES MELLITUS
     Dosage: 5 MG
     Route: 065
  4. SIMVASTATIN [Concomitant]
     Indication: DYSLIPIDAEMIA
     Route: 065
  5. METOPROLOL [Concomitant]
     Indication: HEART RATE
     Route: 065

REACTIONS (3)
  - Haemorrhage intracranial [Fatal]
  - Blood creatinine increased [Unknown]
  - Off label use [Unknown]
